FAERS Safety Report 20942581 (Version 1)
Quarter: 2022Q2

REPORT INFORMATION
  Report Type: Spontaneous
  Country: AU (occurrence: AU)
  Receive Date: 20220610
  Receipt Date: 20220610
  Transmission Date: 20220721
  Serious: Yes (Other)
  Sender: FDA-Public Use
  Company Number: AU-STRIDES ARCOLAB LIMITED-2022SP006808

PATIENT
  Age: 81 Year
  Sex: Male

DRUGS (6)
  1. CLARITHROMYCIN [Suspect]
     Active Substance: CLARITHROMYCIN
     Indication: Mycobacterium ulcerans infection
     Dosage: UNK; 8 WEEK COURSE
     Route: 065
  2. CEPHALEXIN [Suspect]
     Active Substance: CEPHALEXIN
     Indication: Ulcer
     Dosage: UNK
     Route: 048
  3. CEPHALEXIN [Suspect]
     Active Substance: CEPHALEXIN
     Indication: Erythema
  4. CEPHALEXIN [Suspect]
     Active Substance: CEPHALEXIN
     Indication: Pain
  5. CEPHALEXIN [Suspect]
     Active Substance: CEPHALEXIN
     Indication: Induration
  6. RIFAMPIN [Suspect]
     Active Substance: RIFAMPIN
     Indication: Mycobacterium ulcerans infection
     Dosage: UNK; 8 WEEK COURSE
     Route: 065

REACTIONS (4)
  - Paradoxical pain [Recovered/Resolved]
  - Swelling [Recovered/Resolved]
  - Paradoxical drug reaction [Recovered/Resolved]
  - Off label use [Unknown]
